FAERS Safety Report 18285320 (Version 4)
Quarter: 2020Q4

REPORT INFORMATION
  Report Type: Spontaneous
  Country: US (occurrence: US)
  Receive Date: 20200918
  Receipt Date: 20201127
  Transmission Date: 20210113
  Serious: No
  Sender: FDA-Public Use
  Company Number: US-TEVA-2020-US-1828574

PATIENT
  Age: 64 Year
  Sex: Male

DRUGS (5)
  1. LODINE [Suspect]
     Active Substance: ETODOLAC
     Route: 065
     Dates: start: 2000
  2. MOTRIN [Suspect]
     Active Substance: IBUPROFEN
     Route: 065
     Dates: start: 2000
  3. ZANTAC [Concomitant]
     Active Substance: RANITIDINE HYDROCHLORIDE
     Route: 065
  4. TAGAMET [Concomitant]
     Active Substance: CIMETIDINE
     Route: 065
  5. NAPROXEN. [Suspect]
     Active Substance: NAPROXEN
     Route: 065
     Dates: start: 2000

REACTIONS (2)
  - Gastritis [Unknown]
  - Enteritis [Unknown]
